FAERS Safety Report 19129344 (Version 2)
Quarter: 2022Q2

REPORT INFORMATION
  Report Type: Spontaneous
  Country: US (occurrence: US)
  Receive Date: 20210413
  Receipt Date: 20220419
  Transmission Date: 20220720
  Serious: No
  Sender: FDA-Public Use
  Company Number: US-ORPHANEU-2020004892

PATIENT

DRUGS (1)
  1. CYSTADANE [Suspect]
     Active Substance: BETAINE
     Indication: Vitamin B complex deficiency
     Dosage: 1 SCOOP FOUR TIMES DAILY

REACTIONS (2)
  - Renal cyst [Unknown]
  - Product use issue [Recovered/Resolved]
